FAERS Safety Report 4714251-X (Version None)
Quarter: 2005Q3

REPORT INFORMATION
  Report Type: 
  Country: None (occurrence: None)
  Receive Date: 20050714
  Receipt Date: 20050707
  Transmission Date: 20060218
  Serious: Yes (Death)
  Sender: FDA-Public Use
  Company Number: PHBS2005FI09732

PATIENT
  Age: 13 Year
  Sex: Female

DRUGS (3)
  1. SABRILEX [Concomitant]
     Dosage: 2250 MG/D
     Route: 065
  2. ABSENOR [Concomitant]
     Dosage: 700 MG/D
  3. AREDIA [Suspect]
     Indication: OSTEOPOROSIS
     Dates: start: 20050608, end: 20050608

REACTIONS (12)
  - COLD SWEAT [None]
  - DYSPNOEA [None]
  - HAEMOGLOBIN DECREASED [None]
  - HAEMORRHAGE [None]
  - MENINGOCOCCAL SEPSIS [None]
  - PANCYTOPENIA [None]
  - PETECHIAE [None]
  - PLATELET COUNT DECREASED [None]
  - PNEUMOCOCCAL INFECTION [None]
  - PYREXIA [None]
  - URTICARIA [None]
  - WHITE BLOOD CELL COUNT DECREASED [None]
